FAERS Safety Report 8962585 (Version 1)
Quarter: 2012Q4

REPORT INFORMATION
  Report Type: Spontaneous
  Country: US (occurrence: None)
  Receive Date: 20121211
  Receipt Date: 20121211
  Transmission Date: 20130627
  Serious: No
  Sender: FDA-Public Use
  Company Number: None

PATIENT
  Sex: Male

DRUGS (1)
  1. VOTRIENT [Suspect]
     Indication: RENAL CARCINOMA
     Route: 048
     Dates: start: 20110126

REACTIONS (2)
  - Palmar-plantar erythrodysaesthesia syndrome [None]
  - Diarrhoea [None]
